FAERS Safety Report 10152184 (Version 1)
Quarter: 2014Q2

REPORT INFORMATION
  Report Type: Spontaneous
  Country: US (occurrence: None)
  Receive Date: 20140502
  Receipt Date: 20140502
  Transmission Date: 20141212
  Serious: No
  Sender: FDA-Public Use
  Company Number: None

PATIENT
  Age: 61 Year
  Sex: Female
  Weight: 71.67 kg

DRUGS (1)
  1. REBIF [Suspect]
     Indication: MULTIPLE SCLEROSIS
     Dosage: SUBCUTANEOUS INJECTION 3 TIMES A WEEK GIVEN INTO/UNDER THE SKIN
     Dates: start: 20140429

REACTIONS (5)
  - Product packaging confusion [None]
  - Influenza [None]
  - Incorrect dose administered [None]
  - Product dosage form confusion [None]
  - Circumstance or information capable of leading to medication error [None]
